FAERS Safety Report 10176443 (Version 1)
Quarter: 2014Q2

REPORT INFORMATION
  Report Type: Spontaneous
  Country: US (occurrence: US)
  Receive Date: 20140516
  Receipt Date: 20140516
  Transmission Date: 20141212
  Serious: Yes (Other)
  Sender: FDA-Public Use
  Company Number: US-PFIZER INC-2014132244

PATIENT
  Age: 71 Year
  Sex: Female
  Weight: 63.49 kg

DRUGS (8)
  1. REVATIO [Suspect]
     Indication: PULMONARY HYPERTENSION
     Dosage: 40 MG (TWO 20MG TABLET), 3X/DAY
     Dates: start: 20100922
  2. CLONAZEPAM [Concomitant]
     Dosage: 0.5 MG, DAILY
  3. WARFARIN [Concomitant]
     Dosage: 5 MG, AS NEEDED
  4. GABAPENTIN [Concomitant]
     Dosage: 1800 MG, 2X/DAY
  5. METOPROLOL [Concomitant]
     Dosage: 50 MG, DAILY
  6. HYDROCHLOROTHIAZIDE [Concomitant]
     Dosage: 25 MG, DAILY
  7. DICLOFENAC SODIUM [Concomitant]
     Dosage: 75 MG, 2X/DAY
  8. MISOPROSTOL [Concomitant]
     Dosage: 200 UG, 2X/DAY

REACTIONS (2)
  - Back disorder [Unknown]
  - Arthropathy [Unknown]
